FAERS Safety Report 10731781 (Version 4)
Quarter: 2016Q2

REPORT INFORMATION
  Report Type: Spontaneous
  Country: JP (occurrence: JP)
  Receive Date: 20150123
  Receipt Date: 20160608
  Transmission Date: 20160815
  Serious: Yes (Hospitalization, Other)
  Sender: FDA-Public Use
  Company Number: JP-BRISTOL-MYERS SQUIBB COMPANY-21449459

PATIENT
  Age: 67 Year
  Sex: Female
  Weight: 48 kg

DRUGS (1)
  1. ORENCIA [Suspect]
     Active Substance: ABATACEPT
     Indication: RHEUMATOID ARTHRITIS
     Dosage: 125 MG, QWK
     Route: 058
     Dates: start: 20140704, end: 20140905

REACTIONS (4)
  - Laryngeal disorder [Recovered/Resolved]
  - Stomatitis [Recovered/Resolved]
  - Erosive oesophagitis [Recovered/Resolved]
  - Pharyngeal erosion [Recovered/Resolved]

NARRATIVE: CASE EVENT DATE: 20140829
